FAERS Safety Report 24461213 (Version 1)
Quarter: 2024Q4

REPORT INFORMATION
  Report Type: Spontaneous
  Country: CN (occurrence: CN)
  Receive Date: 20241018
  Receipt Date: 20241018
  Transmission Date: 20250114
  Serious: No
  Sender: ROCHE
  Company Number: CN-ROCHE-3574807

PATIENT
  Age: 72 Year
  Sex: Male

DRUGS (4)
  1. MABTHERA [Suspect]
     Active Substance: RITUXIMAB
     Indication: Mantle cell lymphoma stage IV
     Dosage: D1:06-SEP-2023,08-OCT-2023,04-NOV-2023
     Route: 065
     Dates: start: 20230906
  2. MABTHERA [Suspect]
     Active Substance: RITUXIMAB
     Dosage: D1:01-DEC-2023,03-JAN-2024,19-FEB-2024
     Route: 065
     Dates: start: 20231201
  3. BENDAMUSTINE [Concomitant]
     Active Substance: BENDAMUSTINE
     Indication: Mantle cell lymphoma stage IV
     Dosage: D1-2:06-SEP-2023,08-OCT-2023,04-NOV-2023
     Dates: start: 20230906
  4. BENDAMUSTINE [Concomitant]
     Active Substance: BENDAMUSTINE
     Dosage: D1-2:01-DEC-2023,03-JAN-2024,19-FEB-2024
     Dates: start: 20231201

REACTIONS (2)
  - Off label use [Unknown]
  - No adverse event [Unknown]
